FAERS Safety Report 21585053 (Version 7)
Quarter: 2024Q1

REPORT INFORMATION
  Report Type: Report from Study
  Country: US (occurrence: US)
  Receive Date: 20221111
  Receipt Date: 20240103
  Transmission Date: 20240409
  Serious: Yes (Other)
  Sender: FDA-Public Use
  Company Number: US-ABBVIE-4195911

PATIENT
  Sex: Male

DRUGS (9)
  1. SKYRIZI [Suspect]
     Active Substance: RISANKIZUMAB-RZAA
     Indication: Crohn^s disease
     Dosage: FORM STRENGTH: 360 MG?EVERY 8 WEEKS
     Route: 058
  2. SKYRIZI [Suspect]
     Active Substance: RISANKIZUMAB-RZAA
     Dosage: 360 MILLIGRAM?LAST ADMIN DATE: 2022
     Route: 058
  3. SKYRIZI [Suspect]
     Active Substance: RISANKIZUMAB-RZAA
     Dosage: 360MG/2.4ML?LAST ADMIN DATE: 2022
     Route: 058
     Dates: start: 20220228
  4. SKYRIZI [Suspect]
     Active Substance: RISANKIZUMAB-RZAA
     Dosage: 360MG/2.4ML?FORM STRENGTH: 360 MG?EVERY 8 WEEKS
     Route: 058
  5. SKYRIZI [Suspect]
     Active Substance: RISANKIZUMAB-RZAA
     Dosage: FORM STRENGTH: 360 MG?WEEK 12
     Route: 058
     Dates: start: 20221222
  6. SKYRIZI [Suspect]
     Active Substance: RISANKIZUMAB-RZAA
     Indication: Crohn^s disease
     Dosage: TIME INTERVAL: TOTAL: WEEK 0  FORM STRENGTH: 600 MG
     Route: 042
     Dates: start: 20220825, end: 20220825
  7. SKYRIZI [Suspect]
     Active Substance: RISANKIZUMAB-RZAA
     Indication: Crohn^s disease
     Dosage: TIME INTERVAL: TOTAL: WEEK 4  FORM STRENGTH: 600 MG
     Route: 042
     Dates: start: 20220922, end: 20220922
  8. SKYRIZI [Suspect]
     Active Substance: RISANKIZUMAB-RZAA
     Indication: Crohn^s disease
     Dosage: TIME INTERVAL: TOTAL: WEEK 8 FORM STRENGTH: 600 MG?600MG/10M
     Route: 042
     Dates: start: 20221020, end: 20221020
  9. COVID-19 VACCINE NOS [Suspect]
     Active Substance: COVID-19 VACCINE NOS
     Indication: COVID-19 immunisation
     Dosage: TIME INTERVAL: TOTAL: FREQUENCY: ONCE
     Route: 030
     Dates: start: 20230214, end: 20230214

REACTIONS (20)
  - Intestinal obstruction [Recovered/Resolved]
  - COVID-19 [Unknown]
  - Asthenia [Unknown]
  - Shoulder operation [Recovering/Resolving]
  - Chills [Recovered/Resolved]
  - Crohn^s disease [Not Recovered/Not Resolved]
  - Nausea [Unknown]
  - Gastrointestinal sounds abnormal [Not Recovered/Not Resolved]
  - Insomnia [Not Recovered/Not Resolved]
  - Constipation [Unknown]
  - Eructation [Not Recovered/Not Resolved]
  - Decreased appetite [Not Recovered/Not Resolved]
  - Haematochezia [Not Recovered/Not Resolved]
  - Fatigue [Unknown]
  - Therapeutic product effect incomplete [Unknown]
  - Abdominal pain [Unknown]
  - Faeces soft [Not Recovered/Not Resolved]
  - Feeling abnormal [Recovered/Resolved]
  - Flatulence [Not Recovered/Not Resolved]
  - Frequent bowel movements [Not Recovered/Not Resolved]

NARRATIVE: CASE EVENT DATE: 20220101
